FAERS Safety Report 5804757-4 (Version None)
Quarter: 2008Q3

REPORT INFORMATION
  Report Type: 
  Country: None (occurrence: None)
  Receive Date: 20080709
  Receipt Date: 20080627
  Transmission Date: 20090109
  Serious: Yes (Other)
  Sender: FDA-Public Use
  Company Number: GB-WYE-G01786308

PATIENT
  Age: 34 Year
  Sex: Male

DRUGS (4)
  1. EFFEXOR [Suspect]
     Dosage: 150 MG FREQUENCY UNSPECIFIED
     Route: 048
  2. MORPHINE [Concomitant]
     Dosage: UNKNOWN
     Dates: start: 20080601
  3. ORAMORPH SR [Concomitant]
     Dosage: UNKNOWN
     Dates: start: 20080601
  4. TRAMADOL HCL [Interacting]
     Dosage: UNKNOWN
     Route: 048
     Dates: start: 20080601

REACTIONS (2)
  - CONVULSION [None]
  - DRUG INTERACTION [None]
